FAERS Safety Report 16657030 (Version 6)
Quarter: 2020Q1

REPORT INFORMATION
  Report Type: Spontaneous
  Country: US (occurrence: US)
  Receive Date: 20190801
  Receipt Date: 20200311
  Transmission Date: 20200409
  Serious: No
  Sender: FDA-Public Use
  Company Number: US-PFIZER INC-2019328922

PATIENT
  Age: 80 Year
  Sex: Male
  Weight: 58.97 kg

DRUGS (4)
  1. VYNDAQEL [Suspect]
     Active Substance: TAFAMIDIS MEGLUMINE
     Indication: FLUID IMBALANCE
  2. LASIX [Concomitant]
     Active Substance: FUROSEMIDE
     Dosage: 1 DF, ALTERNATE DAY (DATE STARTED: 4 MONTHS AGO/WATER PILL)
     Dates: start: 2019
  3. VYNDAQEL [Suspect]
     Active Substance: TAFAMIDIS MEGLUMINE
     Indication: AMYLOIDOSIS
     Dosage: 80 MG, 1X/DAY
     Route: 048
     Dates: start: 201911
  4. BUMEX [Concomitant]
     Active Substance: BUMETANIDE
     Indication: DIURETIC THERAPY
     Dosage: 1 MG, 1X/DAY

REACTIONS (10)
  - Back pain [Unknown]
  - Malaise [Not Recovered/Not Resolved]
  - Dysuria [Not Recovered/Not Resolved]
  - Fluid retention [Unknown]
  - Chest pain [Unknown]
  - Product use in unapproved indication [Unknown]
  - Dyspnoea exertional [Unknown]
  - Dysphagia [Unknown]
  - Off label use [Unknown]
  - Foreign body in respiratory tract [Unknown]

NARRATIVE: CASE EVENT DATE: 201911
